FAERS Safety Report 4438225-1 (Version None)
Quarter: 2004Q3

REPORT INFORMATION
  Report Type: 
  Country: None (occurrence: None)
  Receive Date: 20040831
  Receipt Date: 20040618
  Transmission Date: 20050211
  Serious: No
  Sender: FDA-Public Use
  Company Number: US-GLAXOSMITHKLINE-A0515536A

PATIENT
  Age: 61 Year
  Sex: Female

DRUGS (1)
  1. WELLBUTRIN XL [Suspect]
     Indication: DEPRESSION
     Dosage: 150MG PER DAY
     Route: 048
     Dates: start: 20040605, end: 20040607

REACTIONS (5)
  - AGITATION [None]
  - DRUG INEFFECTIVE [None]
  - HEADACHE [None]
  - NAUSEA [None]
  - PANIC ATTACK [None]
